FAERS Safety Report 7829268-6 (Version None)
Quarter: 2011Q4

REPORT INFORMATION
  Report Type: 
  Country: None (occurrence: None)
  Receive Date: 20111020
  Receipt Date: 20111007
  Transmission Date: 20120403
  Serious: Yes (Hospitalization)
  Sender: FDA-Public Use
  Company Number: CA-ELI_LILLY_AND_COMPANY-CA201110002704

PATIENT
  Age: 78 Year
  Sex: Male

DRUGS (6)
  1. VITALUX [Concomitant]
  2. STRESSTABS [Concomitant]
  3. FORTEO [Suspect]
     Indication: OSTEOPOROSIS
     Dosage: 20 UG, QD
     Route: 058
     Dates: start: 20110910
  4. CALCIUM CARBONATE [Concomitant]
  5. VITAMIN D [Concomitant]
  6. VITAMIN B COMPLEX CAP [Concomitant]

REACTIONS (2)
  - SPINAL COMPRESSION FRACTURE [None]
  - BACK PAIN [None]
